FAERS Safety Report 15418101 (Version 1)
Quarter: 2018Q3

REPORT INFORMATION
  Report Type: Report from Study
  Country: FR (occurrence: FR)
  Receive Date: 20180924
  Receipt Date: 20180924
  Transmission Date: 20181010
  Serious: Yes (Death, Other)
  Sender: FDA-Public Use
  Company Number: FR-SA-2018SA263764

PATIENT
  Age: 80 Year
  Sex: Male

DRUGS (2)
  1. ALEMTUZUMAB [Suspect]
     Active Substance: ALEMTUZUMAB
     Indication: LEUKAEMIA
     Dosage: 3 ADMINISTRATIONS PER WEEK
     Route: 041
  2. ALEMTUZUMAB [Suspect]
     Active Substance: ALEMTUZUMAB
     Dosage: 30 MG/ML, UNK
     Route: 041

REACTIONS (3)
  - Lung infection [Unknown]
  - Lung disorder [Fatal]
  - Agranulocytosis [Fatal]
